FAERS Safety Report 8354883-3 (Version None)
Quarter: 2012Q2

REPORT INFORMATION
  Report Type: 
  Country: None (occurrence: None)
  Receive Date: 20120511
  Receipt Date: 20120507
  Transmission Date: 20120825
  Serious: No
  Sender: FDA-Public Use
  Company Number: US-TEVA-337178USA

PATIENT
  Sex: Male
  Weight: 86.26 kg

DRUGS (2)
  1. PROAIR HFA [Suspect]
     Indication: CHEST DISCOMFORT
  2. PRINZIDE [Concomitant]
     Indication: HYPERTENSION
     Dosage: 5/6.25 MG

REACTIONS (1)
  - CHEST DISCOMFORT [None]
